FAERS Safety Report 16888805 (Version 1)
Quarter: 2019Q4

REPORT INFORMATION
  Report Type: Spontaneous
  Country: US (occurrence: US)
  Receive Date: 20191007
  Receipt Date: 20191007
  Transmission Date: 20200122
  Serious: No
  Sender: FDA-Public Use
  Company Number: US-ELI_LILLY_AND_COMPANY-US201910001622

PATIENT
  Sex: Female

DRUGS (2)
  1. LYRICA [Concomitant]
     Active Substance: PREGABALIN
     Indication: NEURALGIA
  2. CYMBALTA [Suspect]
     Active Substance: DULOXETINE HYDROCHLORIDE
     Indication: NEURALGIA
     Dosage: 20 MG, UNKNOWN
     Route: 065
     Dates: start: 20190619

REACTIONS (4)
  - Muscular weakness [Unknown]
  - Fall [Unknown]
  - Mobility decreased [Unknown]
  - Back pain [Unknown]

NARRATIVE: CASE EVENT DATE: 201908
